FAERS Safety Report 9132023 (Version 1)
Quarter: 2013Q1

REPORT INFORMATION
  Report Type: Report from Study
  Country: PE (occurrence: PE)
  Receive Date: 20130208
  Receipt Date: 20130208
  Transmission Date: 20140127
  Serious: Yes (Other)
  Sender: FDA-Public Use
  Company Number: PE-ROCHE-1189158

PATIENT
  Age: 47 Year
  Sex: Female
  Weight: 80 kg

DRUGS (4)
  1. HERCEPTIN [Suspect]
     Indication: BREAST CANCER
     Route: 042
     Dates: start: 20120801
  2. LETROZOLE [Concomitant]
     Indication: BREAST CANCER
     Route: 048
     Dates: start: 201212
  3. LETROZOLE [Concomitant]
     Route: 048
     Dates: start: 20130131
  4. METAMIZOLE [Concomitant]
     Route: 048

REACTIONS (4)
  - Rectal haemorrhage [Recovering/Resolving]
  - Constipation [Not Recovered/Not Resolved]
  - Oedema peripheral [Not Recovered/Not Resolved]
  - Infusion related reaction [Recovered/Resolved]
